FAERS Safety Report 17775263 (Version 1)
Quarter: 2020Q2

REPORT INFORMATION
  Report Type: Spontaneous
  Country: US (occurrence: US)
  Receive Date: 20200513
  Receipt Date: 20200513
  Transmission Date: 20200714
  Serious: No
  Sender: FDA-Public Use
  Company Number: None

PATIENT

DRUGS (2)
  1. REMDESIVIR. [Suspect]
     Active Substance: REMDESIVIR
     Route: 042
  2. REMDESIVIR. [Suspect]
     Active Substance: REMDESIVIR
     Route: 042

REACTIONS (2)
  - Incorrect dose administered [None]
  - Product label confusion [None]
